FAERS Safety Report 6162727-3 (Version None)
Quarter: 2009Q2

REPORT INFORMATION
  Report Type: 
  Country: None (occurrence: None)
  Receive Date: 20090421
  Receipt Date: 20080402
  Transmission Date: 20091009
  Serious: No
  Sender: FDA-Public Use
  Company Number: US-ASTRAZENECA-2008UW06664

PATIENT
  Age: 70 Year
  Sex: Male
  Weight: 104.3 kg

DRUGS (13)
  1. TOPROL-XL [Suspect]
     Indication: HYPERTENSION
     Dosage: 25 MG
     Route: 048
  2. METFORMIN HCL [Concomitant]
  3. PRILOSEC [Concomitant]
     Route: 048
  4. NITROGLYCERIN [Concomitant]
  5. NORVASC [Concomitant]
  6. XANAX [Concomitant]
  7. SYNTHROID [Concomitant]
  8. PLAVIX [Concomitant]
  9. HYDROCHLOROTHIAZIDE [Concomitant]
  10. LISINOPRIL [Concomitant]
     Route: 048
  11. ASPIRIN [Concomitant]
     Dosage: 81 MG
  12. ALLOPURINOL [Concomitant]
  13. ZEBETA [Concomitant]

REACTIONS (2)
  - HEART RATE DECREASED [None]
  - ILL-DEFINED DISORDER [None]
